FAERS Safety Report 6380614-2 (Version None)
Quarter: 2009Q3

REPORT INFORMATION
  Report Type: 
  Country: None (occurrence: None)
  Receive Date: 20090929
  Receipt Date: 20090915
  Transmission Date: 20100115
  Serious: Yes (Hospitalization)
  Sender: FDA-Public Use
  Company Number: US-MYLANLABS-2009S1016193

PATIENT
  Age: 60 Year
  Sex: Male

DRUGS (4)
  1. CLONAZEPAM [Suspect]
     Route: 048
  2. QUETIAPINE FUMARATE [Concomitant]
     Dosage: 600MG AT BEDTIME
  3. FLUOXETINE [Concomitant]
     Dosage: 80MG EVERY MORNING
  4. PRAZSOIN HCL [Concomitant]
     Dosage: 4MG AT BEDTIME

REACTIONS (1)
  - CATATONIA [None]
